FAERS Safety Report 25665600 (Version 1)
Quarter: 2025Q3

REPORT INFORMATION
  Report Type: Spontaneous
  Country: US (occurrence: US)
  Receive Date: 20250811
  Receipt Date: 20250811
  Transmission Date: 20251021
  Serious: No
  Sender: FRESENIUS KABI
  Company Number: US-FreseniusKabi-FK202510463

PATIENT

DRUGS (1)
  1. XYLOCAINE MPF [Suspect]
     Active Substance: LIDOCAINE HYDROCHLORIDE
     Indication: Local anaesthesia
     Dates: start: 20250724

REACTIONS (2)
  - Pallor [Unknown]
  - Therapeutic response unexpected [Unknown]

NARRATIVE: CASE EVENT DATE: 20250724
